FAERS Safety Report 4737877-6 (Version None)
Quarter: 2005Q3

REPORT INFORMATION
  Report Type: 
  Country: None (occurrence: None)
  Receive Date: 20050809
  Receipt Date: 20050728
  Transmission Date: 20060218
  Serious: Yes (Life-Threatening, Hospitalization, Disabling)
  Sender: FDA-Public Use
  Company Number: SG-JNJFOC-20050705900

PATIENT
  Sex: Female

DRUGS (12)
  1. REMICADE [Suspect]
     Route: 042
  2. REMICADE [Suspect]
     Route: 042
  3. METHOTREXATE [Concomitant]
     Route: 048
  4. PREDNISOLONE [Concomitant]
     Route: 048
  5. CANDESARTAN [Concomitant]
     Route: 048
  6. HYDROCHLOROTHIAZIDE [Concomitant]
     Route: 048
  7. RISEDRONATE [Concomitant]
     Route: 048
  8. NIFEDIPINE LA [Concomitant]
     Route: 048
  9. METFORMIN [Concomitant]
     Route: 048
  10. MIXTARD HUMAN 70/30 [Concomitant]
     Route: 058
  11. MIXTARD HUMAN 70/30 [Concomitant]
     Route: 058
  12. PARACETAMOL [Concomitant]
     Dosage: 1 G, 3 IN 1 DAY, AS NEEDED
     Route: 048

REACTIONS (4)
  - BUTTOCK PAIN [None]
  - METASTASES TO LUNG [None]
  - METASTASES TO LYMPH NODES [None]
  - METASTATIC NEOPLASM [None]
